FAERS Safety Report 6740639-1 (Version None)
Quarter: 2010Q2

REPORT INFORMATION
  Report Type: 
  Country: None (occurrence: None)
  Receive Date: 20100521
  Receipt Date: 20100510
  Transmission Date: 20101027
  Serious: Yes (Life-Threatening, Hospitalization)
  Sender: FDA-Public Use
  Company Number: 2010AL002836

PATIENT
  Age: 73 Year
  Sex: Female

DRUGS (8)
  1. RAMIPRIL [Suspect]
     Indication: HYPERTENSION
     Dosage: 5 MG;BID;PO
     Route: 048
     Dates: start: 20090201, end: 20100108
  2. SPIRONOLACTONE TABLETS USP [Suspect]
     Indication: HYPERTENSION
     Dosage: 25 MG;QD;PO
     Route: 048
     Dates: start: 20091201, end: 20100108
  3. AMIODARONE [Concomitant]
  4. SIMVASTATIN [Concomitant]
  5. LEVOTHYROXINE SODIUM [Concomitant]
  6. ASPIRIN [Concomitant]
  7. BISOPROLOL [Concomitant]
  8. AMLODIPINE [Concomitant]

REACTIONS (11)
  - ASTHENIA [None]
  - CEREBRAL ATROPHY [None]
  - CEREBRAL MICROANGIOPATHY [None]
  - COMPUTERISED TOMOGRAM ABNORMAL [None]
  - DIZZINESS [None]
  - HYPONATRAEMIA [None]
  - NAUSEA [None]
  - SINUSITIS [None]
  - SYNCOPE [None]
  - TRANSIENT ISCHAEMIC ATTACK [None]
  - VOMITING [None]
